FAERS Safety Report 14172300 (Version 1)
Quarter: 2017Q4

REPORT INFORMATION
  Report Type: Spontaneous
  Country: BR (occurrence: BR)
  Receive Date: 20171109
  Receipt Date: 20171109
  Transmission Date: 20180321
  Serious: Yes (Other)
  Sender: FDA-Public Use
  Company Number: BR-SUN PHARMACEUTICAL INDUSTRIES LTD-2017RR-154244

PATIENT
  Age: 54 Year
  Sex: Male

DRUGS (2)
  1. TEMOZOLOMIDE. [Suspect]
     Active Substance: TEMOZOLOMIDE
     Indication: MALIGNANT GLIOMA
     Dosage: 75 MG EVERY DAY FOR 6 WEEKS
     Route: 065
  2. TEMOZOLOMIDE. [Suspect]
     Active Substance: TEMOZOLOMIDE
     Indication: MALIGNANT GLIOMA
     Dosage: (150-200 MG) ON A 28-DAY CYCLE WITH 5 DAYS ON AND 23 DAYS OFF FOR 3 CYCLES
     Route: 065

REACTIONS (4)
  - Drug ineffective [Unknown]
  - Seizure [Unknown]
  - Thrombocytopenia [Unknown]
  - Headache [Unknown]
